FAERS Safety Report 14656491 (Version 5)
Quarter: 2018Q3

REPORT INFORMATION
  Report Type: Spontaneous
  Country: US (occurrence: US)
  Receive Date: 20180319
  Receipt Date: 20180705
  Transmission Date: 20181010
  Serious: Yes (Other)
  Sender: FDA-Public Use
  Company Number: US-PFIZER INC-2018112623

PATIENT
  Age: 47 Year
  Sex: Female

DRUGS (1)
  1. METHOTREXATE SODIUM. [Suspect]
     Active Substance: METHOTREXATE SODIUM
     Indication: RHEUMATOID ARTHRITIS
     Dosage: UNK

REACTIONS (9)
  - Drug ineffective [Unknown]
  - Madarosis [Unknown]
  - Nausea [Unknown]
  - Chronic kidney disease [Unknown]
  - Alopecia [Unknown]
  - Renal pain [Unknown]
  - Single functional kidney [Unknown]
  - Abdominal pain [Unknown]
  - Fatigue [Unknown]
